FAERS Safety Report 11222655 (Version 1)
Quarter: 2015Q2

REPORT INFORMATION
  Report Type: Report from Study
  Country: US (occurrence: US)
  Receive Date: 20150626
  Receipt Date: 20150626
  Transmission Date: 20150821
  Serious: Yes (Other)
  Sender: FDA-Public Use
  Company Number: US-ABBVIE-15K-163-1413346-00

PATIENT
  Age: 57 Year
  Sex: Male

DRUGS (1)
  1. HUMIRA [Suspect]
     Active Substance: ADALIMUMAB
     Indication: CROHN^S DISEASE
     Route: 065
     Dates: start: 2014, end: 201503

REACTIONS (7)
  - Drug ineffective [Not Recovered/Not Resolved]
  - Large intestine polyp [Recovered/Resolved]
  - Anxiety [Unknown]
  - Post procedural complication [Unknown]
  - Precancerous cells present [Unknown]
  - Constipation [Recovering/Resolving]
  - Intestinal obstruction [Unknown]

NARRATIVE: CASE EVENT DATE: 2014
